FAERS Safety Report 24154986 (Version 1)
Quarter: 2024Q3

REPORT INFORMATION
  Report Type: Spontaneous
  Country: US (occurrence: US)
  Receive Date: 20240731
  Receipt Date: 20240731
  Transmission Date: 20241017
  Serious: No
  Sender: AJANTA PHARMA
  Company Number: US-AJANTA-2024AJA00080

PATIENT
  Age: 73 Year
  Sex: Female
  Weight: 145 kg

DRUGS (2)
  1. CHOLESTYRAMINE [Suspect]
     Active Substance: CHOLESTYRAMINE
     Indication: Diarrhoea
     Route: 048
     Dates: start: 20240417, end: 20240417
  2. CHOLESTYRAMINE [Suspect]
     Active Substance: CHOLESTYRAMINE
     Indication: Colitis microscopic

REACTIONS (4)
  - Oropharyngeal discomfort [Unknown]
  - Product use complaint [Unknown]
  - Product physical consistency issue [Unknown]
  - Product use in unapproved indication [Unknown]

NARRATIVE: CASE EVENT DATE: 20240417
